FAERS Safety Report 8497304-2 (Version None)
Quarter: 2012Q3

REPORT INFORMATION
  Report Type: 
  Country: None (occurrence: None)
  Receive Date: 20120709
  Receipt Date: 20120611
  Transmission Date: 20120928
  Serious: No
  Sender: FDA-Public Use
  Company Number: US-AMGEN-USASP2012036585

PATIENT
  Age: 59 Year
  Sex: Female

DRUGS (3)
  1. ENBREL [Suspect]
     Indication: PERNICIOUS ANAEMIA
  2. ENBREL [Suspect]
     Indication: SJOGREN'S SYNDROME
  3. ENBREL [Suspect]
     Indication: RHEUMATOID ARTHRITIS
     Dosage: 25 MG, 2 TIMES/WK
     Dates: start: 20101007

REACTIONS (8)
  - POLLAKIURIA [None]
  - ANTIBODY TEST ABNORMAL [None]
  - INJECTION SITE HAEMATOMA [None]
  - BLOOD TEST ABNORMAL [None]
  - NEPHROLITHIASIS [None]
  - PYREXIA [None]
  - NODULE [None]
  - CYSTITIS INTERSTITIAL [None]
